FAERS Safety Report 18394557 (Version 3)
Quarter: 2020Q4

REPORT INFORMATION
  Report Type: Report from Study
  Country: US (occurrence: US)
  Receive Date: 20201017
  Receipt Date: 20201214
  Transmission Date: 20210114
  Serious: Yes (Hospitalization)
  Sender: FDA-Public Use
  Company Number: NVSC2020US276264

PATIENT
  Sex: Male

DRUGS (2)
  1. SPIRONOLACTONE. [Suspect]
     Active Substance: SPIRONOLACTONE
     Indication: PRODUCT USED FOR UNKNOWN INDICATION
     Dosage: UNK UNK, UNKNOWN
     Route: 065
  2. ENTRESTO [Suspect]
     Active Substance: SACUBITRIL\VALSARTAN
     Indication: PRODUCT USED FOR UNKNOWN INDICATION
     Dosage: 100 MG, BID (49/51)
     Route: 048

REACTIONS (8)
  - Arthralgia [Unknown]
  - Fluid retention [Recovering/Resolving]
  - Blood glucose increased [Unknown]
  - Epicondylitis [Unknown]
  - Hypotension [Unknown]
  - Gout [Unknown]
  - Inflammation [Unknown]
  - Prostatic specific antigen increased [Unknown]
